FAERS Safety Report 21160216 (Version 1)
Quarter: 2022Q3

REPORT INFORMATION
  Report Type: Report from Study
  Country: CA (occurrence: CA)
  Receive Date: 20220802
  Receipt Date: 20220802
  Transmission Date: 20221027
  Serious: Yes (Other)
  Sender: FDA-Public Use
  Company Number: None

PATIENT
  Age: 48 Year
  Sex: Female
  Weight: 66 kg

DRUGS (9)
  1. FLUOROURACIL [Suspect]
     Active Substance: FLUOROURACIL
     Indication: Breast cancer female
     Route: 065
  2. CYCLOPHOSPHAMIDE [Suspect]
     Active Substance: CYCLOPHOSPHAMIDE
     Indication: Breast cancer female
     Route: 065
  3. EPIRUBICIN HYDROCHLORIDE [Suspect]
     Active Substance: EPIRUBICIN HYDROCHLORIDE
     Indication: Breast cancer female
     Route: 065
  4. INFLIXIMAB [Suspect]
     Active Substance: INFLIXIMAB
     Indication: Colitis ulcerative
     Dosage: POWDER FOR SOLUTION?1 EVERY 8 WEEKS
     Route: 065
  5. TAXOTERE [Suspect]
     Active Substance: DOCETAXEL
     Indication: Breast cancer female
     Dosage: 1 EVERY 3 WEEKS
     Route: 042
  6. AZATHIOPRINE [Concomitant]
     Active Substance: AZATHIOPRINE
     Indication: Product used for unknown indication
     Dosage: 1 EVERY 1 DAYS
     Route: 065
  7. PANTOPRAZOLE [Concomitant]
     Active Substance: PANTOPRAZOLE
     Indication: Product used for unknown indication
     Dosage: 1 EVERY 1 DAYS
     Route: 065
  8. PREDNISONE [Concomitant]
     Active Substance: PREDNISONE
     Indication: Product used for unknown indication
     Route: 065
  9. ZOPICLONE [Concomitant]
     Active Substance: ZOPICLONE
     Indication: Product used for unknown indication
     Dosage: 1 EVERY 1 DAYS
     Route: 065

REACTIONS (6)
  - Breast cancer female [Recovered/Resolved]
  - Fatigue [Recovered/Resolved]
  - Haematochezia [Recovered/Resolved]
  - Myalgia [Recovered/Resolved]
  - Weight increased [Recovered/Resolved]
  - Condition aggravated [Recovered/Resolved]
